FAERS Safety Report 7235139-9 (Version None)
Quarter: 2011Q1

REPORT INFORMATION
  Report Type: 
  Country: None (occurrence: None)
  Receive Date: 20110111
  Receipt Date: 20110103
  Transmission Date: 20110831
  Serious: Yes (Other)
  Sender: FDA-Public Use
  Company Number: 2011MA000073

PATIENT
  Age: 68 Year
  Sex: Male

DRUGS (8)
  1. SLO-PHYLLIN [Concomitant]
  2. CAREOCISTEINE [Concomitant]
  3. INSULIN ASPART [Concomitant]
  4. GABAPENTIN [Suspect]
     Indication: POST HERPETIC NEURALGIA
     Dosage: 100 MG;TID;PO
     Route: 048
     Dates: start: 20100430, end: 20100514
  5. METFORMIN [Concomitant]
  6. LANROPRAZOLE [Concomitant]
  7. IPRATROPIUM BROMIDE [Concomitant]
  8. CO-CODAMOL [Concomitant]

REACTIONS (3)
  - DIZZINESS [None]
  - HALLUCINATION, VISUAL [None]
  - SENSORY DISTURBANCE [None]
